FAERS Safety Report 5385787-6 (Version None)
Quarter: 2007Q3

REPORT INFORMATION
  Report Type: 
  Country: None (occurrence: None)
  Receive Date: 20070712
  Receipt Date: 20070329
  Transmission Date: 20080115
  Serious: Yes (Hospitalization)
  Sender: FDA-Public Use
  Company Number: FR-PFIZER INC-2007055864

PATIENT
  Age: 48 Year
  Sex: Female

DRUGS (1)
  1. LOGIFLOX [Suspect]
     Dosage: DAILY DOSE:400MG
     Route: 048
     Dates: start: 20030315, end: 20030315

REACTIONS (1)
  - ANGIOEDEMA [None]
